FAERS Safety Report 6571849-4 (Version None)
Quarter: 2010Q1

REPORT INFORMATION
  Report Type: 
  Country: None (occurrence: None)
  Receive Date: 20100205
  Receipt Date: 20100125
  Transmission Date: 20100710
  Serious: Yes (Hospitalization, Other)
  Sender: FDA-Public Use
  Company Number: US-JNJFOC-20090908135

PATIENT
  Sex: Male
  Weight: 101.61 kg

DRUGS (20)
  1. REMICADE [Suspect]
     Indication: RHEUMATOID ARTHRITIS
     Route: 042
  2. REMICADE [Suspect]
     Route: 042
  3. REMICADE [Suspect]
     Route: 042
  4. METHOTREXATE [Concomitant]
     Indication: RHEUMATOID ARTHRITIS
  5. OXYCODONE HCL [Concomitant]
  6. MORPHINE [Concomitant]
  7. DIOVAN [Concomitant]
     Indication: HYPERTENSION
  8. LASIX [Concomitant]
     Indication: CARDIAC FAILURE CONGESTIVE
  9. CARDIZEM [Concomitant]
     Indication: CARDIAC DISORDER
  10. PREDNISONE [Concomitant]
     Indication: RHEUMATOID ARTHRITIS
  11. LEUCOVORIN CALCIUM [Concomitant]
     Indication: RHEUMATOID ARTHRITIS
  12. METFORMIN HCL [Concomitant]
     Indication: DIABETES MELLITUS
  13. LYRICA [Concomitant]
     Indication: NEURALGIA
  14. BACLOFEN [Concomitant]
     Indication: MUSCLE SPASMS
  15. COUMADIN [Concomitant]
     Indication: DEEP VEIN THROMBOSIS
  16. ZOCOR [Concomitant]
     Route: 065
  17. PERCOCET [Concomitant]
     Route: 065
  18. ACTONEL [Concomitant]
     Route: 065
  19. CYMBALTA [Concomitant]
     Route: 065
  20. POTASSIUM [Concomitant]
     Route: 065

REACTIONS (4)
  - STAPHYLOCOCCAL INFECTION [None]
  - STREPTOCOCCAL INFECTION [None]
  - TENOSYNOVITIS [None]
  - WOUND INFECTION [None]
